FAERS Safety Report 8770207 (Version 2)
Quarter: 2012Q4

REPORT INFORMATION
  Report Type: 
  Country: GB (occurrence: GB)
  Receive Date: 20120906
  Receipt Date: 20120906
  Transmission Date: 20130627
  Serious: Yes (Other)
  Sender: FDA-Public Use
  Company Number: GB-009507513-2012SP014532

PATIENT

DRUGS (10)
  1. ELOCON [Suspect]
     Indication: DRY SKIN
     Dosage: UNK UNK, Unknown
     Route: 061
     Dates: start: 20110310, end: 2012
  2. BETNOVATE [Suspect]
     Indication: DRY SKIN
     Dosage: UNK UNK, Unknown
     Route: 065
     Dates: start: 2011, end: 2012
  3. EUCERIN UREA LOTION [Suspect]
     Indication: DRY SKIN
     Dosage: UNK UNK, Unknown
     Route: 065
     Dates: start: 2011, end: 2012
  4. MENTHOL [Suspect]
     Indication: DRY SKIN
     Dosage: UNK UNK, Unknown
     Route: 065
     Dates: start: 2011, end: 2012
  5. HAVRIX [Suspect]
     Indication: PROPHYLAXIS
     Dosage: 1 DF, QD
     Route: 065
  6. INFLUENZA VIRUS VACCINE (UNSPECIFIED) [Suspect]
     Indication: PROPHYLAXIS
     Dosage: 1 DF, QD
     Route: 065
  7. REVAXIS [Suspect]
     Indication: PROPHYLAXIS
     Dosage: 1 DF, QD
     Route: 065
  8. ASPIRIN [Concomitant]
     Indication: PRODUCT USED FOR UNKNOWN INDICATION
     Dosage: UPDATE (13JUN2012)
  9. VALISONE [Concomitant]
     Indication: PRODUCT USED FOR UNKNOWN INDICATION
     Dosage: UPDATE (13JUN2012)
  10. BISOPROLOL FUMARATE [Concomitant]
     Indication: PRODUCT USED FOR UNKNOWN INDICATION
     Dosage: UPDATE (13JUN2012)

REACTIONS (1)
  - Loss of consciousness [Recovered/Resolved]
